APPROVED DRUG PRODUCT: IBUPROFEN
Active Ingredient: IBUPROFEN
Strength: EQ 200MG FREE ACID AND POTASSIUM SALT
Dosage Form/Route: CAPSULE;ORAL
Application: A078682 | Product #001
Applicant: BIONPHARMA INC
Approved: Mar 24, 2009 | RLD: No | RS: No | Type: OTC